FAERS Safety Report 16588377 (Version 1)
Quarter: 2019Q3

REPORT INFORMATION
  Report Type: Spontaneous
  Country: US (occurrence: US)
  Receive Date: 20190717
  Receipt Date: 20190717
  Transmission Date: 20191004
  Serious: Yes (Life-Threatening)
  Sender: FDA-Public Use
  Company Number: US-ASTRAZENECA-2019SF02253

PATIENT
  Age: 68 Year
  Sex: Male
  Weight: 86 kg

DRUGS (5)
  1. OXYGEN. [Concomitant]
     Active Substance: OXYGEN
     Indication: PNEUMONITIS
  2. IMMUNOGLOBULIN IV [Concomitant]
     Active Substance: HUMAN IMMUNOGLOBULIN G
     Indication: PNEUMONITIS
     Route: 042
  3. IMFLIXIMAB [Concomitant]
     Indication: PNEUMONITIS
  4. MYCOPHENOLATE MOFETIL. [Concomitant]
     Active Substance: MYCOPHENOLATE MOFETIL
     Indication: PNEUMONITIS
  5. IMFINZI [Suspect]
     Active Substance: DURVALUMAB
     Indication: NON-SMALL CELL LUNG CANCER
     Route: 042
     Dates: start: 2019, end: 20190304

REACTIONS (1)
  - Pneumonitis [Not Recovered/Not Resolved]
